FAERS Safety Report 11982903 (Version 1)
Quarter: 2016Q1

REPORT INFORMATION
  Report Type: Report from Study
  Country: DE (occurrence: DE)
  Receive Date: 20160201
  Receipt Date: 20160201
  Transmission Date: 20160526
  Serious: Yes (Other)
  Sender: FDA-Public Use
  Company Number: DE-JNJFOC-20160121950

PATIENT
  Sex: Female

DRUGS (11)
  1. SIMPONI [Suspect]
     Active Substance: GOLIMUMAB
     Indication: RHEUMATOID ARTHRITIS
     Route: 058
     Dates: start: 201211, end: 201403
  2. MABTHERA [Concomitant]
     Active Substance: RITUXIMAB
     Route: 065
     Dates: start: 201203
  3. MABTHERA [Concomitant]
     Active Substance: RITUXIMAB
     Route: 065
     Dates: start: 201008
  4. MABTHERA [Concomitant]
     Active Substance: RITUXIMAB
     Route: 065
     Dates: start: 201504
  5. MABTHERA [Concomitant]
     Active Substance: RITUXIMAB
     Route: 065
     Dates: start: 201110
  6. MABTHERA [Concomitant]
     Active Substance: RITUXIMAB
     Route: 065
     Dates: start: 201103
  7. MABTHERA [Concomitant]
     Active Substance: RITUXIMAB
     Route: 065
     Dates: start: 200911
  8. METHOTREXATE [Concomitant]
     Active Substance: METHOTREXATE
     Route: 065
  9. MABTHERA [Concomitant]
     Active Substance: RITUXIMAB
     Route: 065
     Dates: start: 201410
  10. MABTHERA [Concomitant]
     Active Substance: RITUXIMAB
     Route: 065
     Dates: start: 201404
  11. MABTHERA [Concomitant]
     Active Substance: RITUXIMAB
     Route: 065
     Dates: start: 200902

REACTIONS (1)
  - Basal cell carcinoma [Unknown]
